FAERS Safety Report 13115552 (Version 1)
Quarter: 2017Q1

REPORT INFORMATION
  Report Type: Spontaneous
  Country: FR (occurrence: FR)
  Receive Date: 20170114
  Receipt Date: 20170114
  Transmission Date: 20170428
  Serious: Yes (Hospitalization, Other)
  Sender: FDA-Public Use
  Company Number: FR-BAXTER-2017BAX000428

PATIENT
  Age: 75 Year
  Sex: Male

DRUGS (29)
  1. ENDOXAN 1000 MG, POUDRE POUR SOLUTION INJECTABLE [Suspect]
     Active Substance: CYCLOPHOSPHAMIDE
     Dosage: SECOND COURSE WITH LOWER DOSE
     Route: 065
  2. CELLTOP 50 MG, CAPSULE [Suspect]
     Active Substance: ETOPOSIDE
     Indication: CHRONIC LYMPHOCYTIC LEUKAEMIA
     Dosage: BEAM PROTOCOL
     Route: 065
  3. VINCRISTINE [Suspect]
     Active Substance: VINCRISTINE
     Indication: TRISOMY 12
  4. RITUXIMAB [Suspect]
     Active Substance: RITUXIMAB
     Indication: CHRONIC LYMPHOCYTIC LEUKAEMIA
     Dosage: TOTAL 3 COURSES
     Route: 065
     Dates: start: 20011002, end: 20020313
  5. CARMUSTINE [Suspect]
     Active Substance: CARMUSTINE
     Indication: TRISOMY 12
  6. MABTHERA [Suspect]
     Active Substance: RITUXIMAB
     Indication: CHRONIC LYMPHOCYTIC LEUKAEMIA RECURRENT
     Dosage: TOTAL 6 COURSES, INFUSION
     Route: 042
     Dates: start: 201101, end: 20110607
  7. ENDOXAN 1000 MG, POUDRE POUR SOLUTION INJECTABLE [Suspect]
     Active Substance: CYCLOPHOSPHAMIDE
     Dosage: THIRD AND FOURTH COURSE
     Route: 065
     Dates: end: 20110405
  8. FLUDARABINE [Suspect]
     Active Substance: FLUDARABINE PHOSPHATE
     Indication: TRISOMY 12
     Dosage: FIRST COURSE
     Route: 065
     Dates: start: 20110111
  9. MELPHALAN [Suspect]
     Active Substance: MELPHALAN
     Indication: TRISOMY 12
  10. ENDOXAN 1000 MG, POUDRE POUR SOLUTION INJECTABLE [Suspect]
     Active Substance: CYCLOPHOSPHAMIDE
     Dosage: FIFTH AND SIXTH COURSE
     Route: 065
     Dates: start: 20110503, end: 20110607
  11. CELLTOP 50 MG, CAPSULE [Suspect]
     Active Substance: ETOPOSIDE
     Indication: TRISOMY 12
  12. FLUDARABINE [Suspect]
     Active Substance: FLUDARABINE PHOSPHATE
     Indication: CHRONIC LYMPHOCYTIC LEUKAEMIA
     Dosage: TOTAL 3 COURSES
     Route: 065
     Dates: start: 20011002, end: 20020313
  13. FLUDARABINE [Suspect]
     Active Substance: FLUDARABINE PHOSPHATE
     Indication: CHRONIC LYMPHOCYTIC LEUKAEMIA RECURRENT
     Dosage: SECOND COURSE WITH LOWER DOSE
     Route: 065
  14. FLUDARABINE [Suspect]
     Active Substance: FLUDARABINE PHOSPHATE
     Dosage: THIRD AND FOURTH COURSE
     Route: 065
     Dates: end: 20110405
  15. CARMUSTINE [Suspect]
     Active Substance: CARMUSTINE
     Indication: CHRONIC LYMPHOCYTIC LEUKAEMIA
     Dosage: BEAM PROTOCOL
     Route: 065
  16. CYTARABINE. [Suspect]
     Active Substance: CYTARABINE
     Indication: CHRONIC LYMPHOCYTIC LEUKAEMIA
     Dosage: BEAM PROTOCOL
     Route: 065
  17. ENDOXAN 1000 MG, POUDRE POUR SOLUTION INJECTABLE [Suspect]
     Active Substance: CYCLOPHOSPHAMIDE
     Dosage: FIRST COURSE
     Route: 065
     Dates: start: 20110111
  18. DOXORUBICIN [Suspect]
     Active Substance: DOXORUBICIN
     Indication: TRISOMY 12
  19. PREDNISONE. [Suspect]
     Active Substance: PREDNISONE
     Indication: TRISOMY 12
  20. MELPHALAN [Suspect]
     Active Substance: MELPHALAN
     Indication: CHRONIC LYMPHOCYTIC LEUKAEMIA
     Dosage: BEAM PROTOCOL
     Route: 065
  21. IMBRUVICA [Suspect]
     Active Substance: IBRUTINIB
     Indication: CHRONIC LYMPHOCYTIC LEUKAEMIA RECURRENT
     Route: 048
     Dates: start: 20151124
  22. ENDOXAN 1000 MG, POUDRE POUR SOLUTION INJECTABLE [Suspect]
     Active Substance: CYCLOPHOSPHAMIDE
     Indication: CHRONIC LYMPHOCYTIC LEUKAEMIA
     Dosage: TOTAL 3 COURSES OF CHOP
     Route: 065
     Dates: start: 20011002, end: 20020313
  23. DOXORUBICIN [Suspect]
     Active Substance: DOXORUBICIN
     Indication: CHRONIC LYMPHOCYTIC LEUKAEMIA
     Dosage: TOTAL 3 COURSES OF CHOP
     Route: 065
     Dates: start: 20011002, end: 20020313
  24. RITUXIMAB [Suspect]
     Active Substance: RITUXIMAB
     Indication: TRISOMY 12
  25. FLUDARABINE [Suspect]
     Active Substance: FLUDARABINE PHOSPHATE
     Dosage: FIFTH AND SIXTH COURSE
     Route: 065
     Dates: start: 20110503, end: 20110607
  26. CYTARABINE. [Suspect]
     Active Substance: CYTARABINE
     Indication: TRISOMY 12
  27. ENDOXAN 1000 MG, POUDRE POUR SOLUTION INJECTABLE [Suspect]
     Active Substance: CYCLOPHOSPHAMIDE
     Indication: TRISOMY 12
     Dosage: TOTAL 3 COURSES
     Route: 065
     Dates: start: 20011002, end: 20020313
  28. VINCRISTINE [Suspect]
     Active Substance: VINCRISTINE
     Indication: CHRONIC LYMPHOCYTIC LEUKAEMIA
     Dosage: TOTAL 3 COURSES OF CHOP
     Route: 065
     Dates: start: 20011002, end: 20020313
  29. PREDNISONE. [Suspect]
     Active Substance: PREDNISONE
     Indication: CHRONIC LYMPHOCYTIC LEUKAEMIA
     Dosage: TOTAL 3 COURSES OF CHOP
     Route: 065
     Dates: start: 20011002, end: 20020313

REACTIONS (3)
  - Myelodysplastic syndrome [Not Recovered/Not Resolved]
  - Chronic lymphocytic leukaemia recurrent [Recovering/Resolving]
  - Chronic lymphocytic leukaemia recurrent [Unknown]

NARRATIVE: CASE EVENT DATE: 201101
